FAERS Safety Report 6537678-2 (Version None)
Quarter: 2010Q1

REPORT INFORMATION
  Report Type: 
  Country: None (occurrence: None)
  Receive Date: 20100107
  Receipt Date: 20091217
  Transmission Date: 20100710
  Serious: Yes (Other)
  Sender: FDA-Public Use
  Company Number: 2010AC000000

PATIENT
  Age: 68 Year
  Sex: Male

DRUGS (10)
  1. DIGOXIN [Suspect]
     Dosage: .125 MG;QD
  2. BISOPROLOL [Concomitant]
  3. FUROSEMIDE [Concomitant]
  4. ACETYLSALICYLIC ACID [Concomitant]
  5. LANSOPRAZOLE [Concomitant]
  6. AMIODARONE [Concomitant]
  7. PERINDOPRIL [Concomitant]
  8. EZETROL [Concomitant]
  9. ACIPIMOX [Concomitant]
  10. WARFARIN [Concomitant]

REACTIONS (11)
  - ATRIAL FIBRILLATION [None]
  - CARDIAC MURMUR [None]
  - DIZZINESS [None]
  - DYSPNOEA [None]
  - FATIGUE [None]
  - FEELING ABNORMAL [None]
  - LEFT VENTRICULAR DYSFUNCTION [None]
  - OEDEMA [None]
  - PARAESTHESIA [None]
  - VENOUS PRESSURE JUGULAR INCREASED [None]
  - VENTRICULAR TACHYCARDIA [None]
